FAERS Safety Report 20308733 (Version 1)
Quarter: 2022Q1

REPORT INFORMATION
  Report Type: Spontaneous
  Country: US (occurrence: None)
  Receive Date: 20220106
  Receipt Date: 20220106
  Transmission Date: 20220423
  Serious: Yes (Hospitalization)
  Sender: FDA-Public Use
  Company Number: None

PATIENT
  Age: 62 Year
  Sex: Female

DRUGS (4)
  1. IVERMECTIN [Suspect]
     Active Substance: IVERMECTIN
     Indication: COVID-19
     Dosage: FREQUENCY : DAILY;?
     Route: 048
     Dates: start: 20211230, end: 20220105
  2. IVERMECTIN [Concomitant]
     Active Substance: IVERMECTIN
     Dates: start: 20211230, end: 20220105
  3. HYDROXYCHLOROQUINE [Concomitant]
     Active Substance: HYDROXYCHLOROQUINE
     Dates: start: 20211230, end: 20220105
  4. PREDNISONE [Concomitant]
     Active Substance: PREDNISONE
     Dates: start: 20211230, end: 20220105

REACTIONS (2)
  - Off label use [None]
  - Product container issue [None]

NARRATIVE: CASE EVENT DATE: 20211230
